FAERS Safety Report 14720850 (Version 2)
Quarter: 2018Q2

REPORT INFORMATION
  Report Type: Report from Study
  Country: US (occurrence: US)
  Receive Date: 20180405
  Receipt Date: 20180418
  Transmission Date: 20180711
  Serious: Yes (Life-Threatening, Hospitalization)
  Sender: FDA-Public Use
  Company Number: US-TEVA-2018-US-877396

PATIENT
  Age: 2 Year
  Sex: Female

DRUGS (3)
  1. NALOXONE [Suspect]
     Active Substance: NALOXONE
     Indication: TOXICITY TO VARIOUS AGENTS
     Dosage: 10MG
     Route: 040
  2. CLONIDINE. [Suspect]
     Active Substance: CLONIDINE
     Route: 048
  3. NALOXONE [Suspect]
     Active Substance: NALOXONE
     Dosage: 5MG/H; TOTAL INTERMITTENT DOSING : 60MG
     Route: 041

REACTIONS (7)
  - Somnolence [Recovered/Resolved]
  - Toxicity to various agents [Unknown]
  - Mental status changes [Unknown]
  - Hypotension [Recovered/Resolved]
  - Hypertension [Recovered/Resolved]
  - Bradycardia [Recovered/Resolved]
  - Overdose [Unknown]
